FAERS Safety Report 7251748-5 (Version None)
Quarter: 2011Q1

REPORT INFORMATION
  Report Type: 
  Country: None (occurrence: None)
  Receive Date: 20110128
  Receipt Date: 20110117
  Transmission Date: 20110831
  Serious: Yes (Other)
  Sender: FDA-Public Use
  Company Number: US-ELI_LILLY_AND_COMPANY-US201101004348

PATIENT
  Age: 56 Year
  Sex: Male
  Weight: 88.435 kg

DRUGS (5)
  1. NORVASC [Concomitant]
     Indication: BLOOD PRESSURE
     Route: 048
  2. LYRICA [Concomitant]
     Indication: NEUROPATHY PERIPHERAL
     Route: 048
     Dates: start: 20100301, end: 20100501
  3. LOPRESSOR [Concomitant]
     Indication: BLOOD PRESSURE
  4. CYMBALTA [Suspect]
     Indication: NEUROPATHY PERIPHERAL
     Dosage: 60 MG, UNK
     Route: 048
     Dates: start: 20100401, end: 20100101
  5. NEURONTIN [Concomitant]
     Indication: NEUROPATHY PERIPHERAL
     Dosage: 300 MG, UNK
     Route: 048
     Dates: start: 20100401, end: 20100901

REACTIONS (9)
  - MUSCLE ATROPHY [None]
  - MUSCULAR DYSTROPHY [None]
  - HYPOAESTHESIA [None]
  - FOOT OPERATION [None]
  - GAIT DISTURBANCE [None]
  - GENERAL PHYSICAL CONDITION ABNORMAL [None]
  - MOBILITY DECREASED [None]
  - DYSSTASIA [None]
  - OFF LABEL USE [None]
